FAERS Safety Report 12308984 (Version 3)
Quarter: 2016Q2

REPORT INFORMATION
  Report Type: Spontaneous
  Country: PL (occurrence: PL)
  Receive Date: 20160427
  Receipt Date: 20160513
  Transmission Date: 20160815
  Serious: Yes (Hospitalization)
  Sender: FDA-Public Use
  Company Number: PL-SUN PHARMACEUTICAL INDUSTRIES LTD-2016RR-115185

PATIENT
  Age: 16 Year
  Sex: Female

DRUGS (5)
  1. KLABAX 500 MG TABLETS [Suspect]
     Active Substance: CLARITHROMYCIN
     Indication: COUGH
  2. KLABAX 500 MG TABLETS [Suspect]
     Active Substance: CLARITHROMYCIN
     Indication: UPPER RESPIRATORY TRACT INFECTION
     Dosage: 500 MG, BID, 2 DOSES TAKEN (MORNING AND EVENING)
     Route: 048
     Dates: start: 20160411, end: 20160411
  3. EUTHYROX [Concomitant]
     Active Substance: LEVOTHYROXINE SODIUM
     Indication: PRODUCT USED FOR UNKNOWN INDICATION
     Route: 065
  4. TELFEXO [Concomitant]
     Active Substance: FEXOFENADINE HYDROCHLORIDE
     Indication: PRODUCT USED FOR UNKNOWN INDICATION
     Dosage: UNK
     Route: 065
     Dates: start: 20160411
  5. KLABAX 500 MG TABLETS [Suspect]
     Active Substance: CLARITHROMYCIN
     Indication: NASAL CONGESTION

REACTIONS (4)
  - Asthenia [Unknown]
  - Loss of consciousness [Unknown]
  - Seizure [Unknown]
  - Dizziness [Unknown]

NARRATIVE: CASE EVENT DATE: 20160412
